FAERS Safety Report 4351306-6 (Version None)
Quarter: 2004Q2

REPORT INFORMATION
  Report Type: 
  Country: None (occurrence: None)
  Receive Date: 20040428
  Receipt Date: 20040419
  Transmission Date: 20050107
  Serious: Yes (Death, Hospitalization, Other)
  Sender: FDA-Public Use
  Company Number: US-JNJFOC-20040404738

PATIENT
  Age: 61 Year
  Sex: Male

DRUGS (3)
  1. DURAGESIC [Suspect]
     Indication: PAIN
     Dosage: 75 UG/HR, 1 IN 72, TRANSDERMAL
     Route: 062
     Dates: start: 20040326, end: 20040327
  2. OXYCODONE (TABLETS) OXYCODONE [Concomitant]
  3. MEGESTROL (TABLETS) MEGESTROL [Concomitant]

REACTIONS (4)
  - MEDICATION ERROR [None]
  - PHARMACEUTICAL PRODUCT COMPLAINT [None]
  - RESPIRATORY FAILURE [None]
  - SEPTIC SHOCK [None]
